FAERS Safety Report 5948664-5 (Version None)
Quarter: 2008Q4

REPORT INFORMATION
  Report Type: 
  Country: None (occurrence: None)
  Receive Date: 20081111
  Receipt Date: 20081030
  Transmission Date: 20090506
  Serious: Yes (Hospitalization)
  Sender: FDA-Public Use
  Company Number: US-WYE-H05880308

PATIENT
  Age: 58 Year
  Sex: Male

DRUGS (2)
  1. PRISTIQ [Suspect]
     Indication: MAJOR DEPRESSION
     Dosage: ^50 MG AND 100 MG QD^
     Route: 048
     Dates: start: 20080812
  2. ZYPREXA [Concomitant]

REACTIONS (2)
  - HYPOAESTHESIA [None]
  - MENTAL DISORDER [None]
